FAERS Safety Report 15061818 (Version 1)
Quarter: 2018Q2

REPORT INFORMATION
  Report Type: Spontaneous
  Country: US (occurrence: US)
  Receive Date: 20180625
  Receipt Date: 20180625
  Transmission Date: 20180711
  Serious: Yes (Other)
  Sender: FDA-Public Use
  Company Number: US-TEVA-2018-US-915580

PATIENT
  Sex: Female

DRUGS (1)
  1. PORTIA [Suspect]
     Active Substance: ETHINYL ESTRADIOL\LEVONORGESTREL
     Route: 065

REACTIONS (3)
  - Pregnancy on contraceptive [Unknown]
  - Product label issue [Unknown]
  - Drug dose omission [Unknown]
